FAERS Safety Report 25838124 (Version 1)
Quarter: 2025Q3

REPORT INFORMATION
  Report Type: Spontaneous
  Country: US (occurrence: PR)
  Receive Date: 20250923
  Receipt Date: 20250923
  Transmission Date: 20251021
  Serious: No
  Sender: ANI
  Company Number: US-ANIPHARMA-2025-PR-000041

PATIENT
  Sex: Male

DRUGS (23)
  1. CORTICOTROPIN [Suspect]
     Active Substance: CORTICOTROPIN
     Indication: Psoriatic arthropathy
     Route: 058
  2. GINGER [Concomitant]
     Active Substance: GINGER
  3. LAMOTRIGINE [Concomitant]
     Active Substance: LAMOTRIGINE
  4. LIPITOR [Concomitant]
     Active Substance: ATORVASTATIN CALCIUM
  5. METOPROLOL TARTRATE [Concomitant]
     Active Substance: METOPROLOL TARTRATE
  6. SINGULAIR [Concomitant]
     Active Substance: MONTELUKAST SODIUM
  7. PRASTERONE [Concomitant]
     Active Substance: PRASTERONE
  8. SENNA LAXATIVE [Concomitant]
     Active Substance: SENNOSIDES
  9. FERROUS SULFATE [Concomitant]
     Active Substance: FERROUS SULFATE
  10. CURCUMIN 95 [Concomitant]
  11. VALSARTAN/HYDROCHLOROTHIA VALSARTAN/HCTZ [Concomitant]
  12. ALLOPURINOL [Concomitant]
     Active Substance: ALLOPURINOL
  13. TRINTELLIX [Concomitant]
     Active Substance: VORTIOXETINE HYDROBROMIDE
  14. LAMICTAL [Concomitant]
     Active Substance: LAMOTRIGINE
  15. KERENDIA [Concomitant]
     Active Substance: FINERENONE
  16. HERBALS\SAW PALMETTO [Concomitant]
     Active Substance: HERBALS\SAW PALMETTO
  17. ASPIRIN [Concomitant]
     Active Substance: ASPIRIN
  18. BACLOFEN [Concomitant]
     Active Substance: BACLOFEN
  19. QNASL [Concomitant]
     Active Substance: BECLOMETHASONE DIPROPIONATE
  20. FARXIGA [Concomitant]
     Active Substance: DAPAGLIFLOZIN PROPANEDIOL
  21. CLARINEX [Concomitant]
     Active Substance: DESLORATADINE
  22. ERGOCALCIFEROL [Concomitant]
     Active Substance: ERGOCALCIFEROL
  23. FOLIC ACID [Concomitant]
     Active Substance: FOLIC ACID

REACTIONS (1)
  - Protein urine [Unknown]
